FAERS Safety Report 10229600 (Version 1)
Quarter: 2014Q2

REPORT INFORMATION
  Report Type: Spontaneous
  Country: FR (occurrence: None)
  Receive Date: 20140609
  Receipt Date: 20140609
  Transmission Date: 20141212
  Serious: No
  Sender: FDA-Public Use
  Company Number: FR-2014-2105

PATIENT
  Sex: Male

DRUGS (3)
  1. NAVELBINE [Suspect]
     Indication: LUNG CANCER METASTATIC
     Dosage: DAY 1 CYCLICAL
     Route: 042
  2. NAVELBINE [Suspect]
     Indication: LUNG CANCER METASTATIC
     Dosage: DAY 1 AND 15 CYCLICAL, ORAL.
  3. ZOMETA (ZOLENDRONIC ACID) [Concomitant]

REACTIONS (1)
  - Optic neuritis [None]
